FAERS Safety Report 13785192 (Version 1)
Quarter: 2017Q3

REPORT INFORMATION
  Report Type: Spontaneous
  Country: US (occurrence: US)
  Receive Date: 20170724
  Receipt Date: 20170724
  Transmission Date: 20171127
  Serious: No
  Sender: FDA-Public Use
  Company Number: None

PATIENT

DRUGS (1)
  1. AZITHROMYCIN TAB 250MG/AZITHROMYCIN TABLETS 250MG GREENSTONE [Suspect]
     Active Substance: AZITHROMYCIN ANHYDROUS
     Dosage: TABLET ORAL 250 MG
     Route: 048

REACTIONS (1)
  - Drug dispensed to wrong patient [None]
